FAERS Safety Report 8229180-7 (Version None)
Quarter: 2012Q1

REPORT INFORMATION
  Report Type: 
  Country: None (occurrence: None)
  Receive Date: 20120322
  Receipt Date: 20120313
  Transmission Date: 20120608
  Serious: Yes (Other)
  Sender: FDA-Public Use
  Company Number: AT-PFIZER INC-2012068000

PATIENT
  Age: 37 Year
  Sex: Male

DRUGS (1)
  1. EPIPEN [Suspect]

REACTIONS (6)
  - BRADYCARDIA [None]
  - DIZZINESS [None]
  - PALLOR [None]
  - PAIN IN EXTREMITY [None]
  - APPLICATION SITE PALLOR [None]
  - ACCIDENTAL EXPOSURE [None]
